FAERS Safety Report 5473781-6 (Version None)
Quarter: 2007Q4

REPORT INFORMATION
  Report Type: 
  Country: None (occurrence: None)
  Receive Date: 20071001
  Receipt Date: 20050610
  Transmission Date: 20080405
  Serious: Yes (Other)
  Sender: FDA-Public Use
  Company Number: US-PFIZER INC-2007057337

PATIENT

DRUGS (1)
  1. DILANTIN [Suspect]

REACTIONS (3)
  - HYPERGLYCAEMIA [None]
  - POLLAKIURIA [None]
  - THIRST [None]
